FAERS Safety Report 6112654 (Version 4)
Quarter: 2017Q4

REPORT INFORMATION
  Report Type: Spontaneous
  Country: US (occurrence: US)
  Receive Date: 20060822
  Receipt Date: 20171024
  Transmission Date: 20180321
  Serious: Yes (Hospitalization)
  Sender: FDA-Public Use
  Company Number: US-JNJFOC-20060802574

PATIENT
  Age: 52 Year
  Sex: Male
  Weight: 86.18 kg

DRUGS (35)
  1. DURAGESIC [Suspect]
     Active Substance: FENTANYL
     Indication: ARTHRITIS REACTIVE
     Dosage: 50 MCG AND 100 MCG
     Route: 062
     Dates: start: 200604, end: 200608
  2. DURAGESIC [Suspect]
     Active Substance: FENTANYL
     Indication: ARTHRITIS REACTIVE
     Route: 062
     Dates: start: 2002
  3. DURAGESIC [Suspect]
     Active Substance: FENTANYL
     Indication: PAIN
     Route: 062
     Dates: start: 2004
  4. DURAGESIC [Suspect]
     Active Substance: FENTANYL
     Indication: PAIN
     Route: 062
     Dates: start: 200608
  5. AVANDIA [Concomitant]
     Active Substance: ROSIGLITAZONE MALEATE
     Route: 065
  6. DURAGESIC [Suspect]
     Active Substance: FENTANYL
     Indication: ARTHRITIS REACTIVE
     Route: 062
     Dates: start: 200608
  7. DURAGESIC [Suspect]
     Active Substance: FENTANYL
     Indication: PAIN
     Route: 062
     Dates: start: 2002
  8. FENTANYL TRANSDERMAL SYSTEM [Suspect]
     Active Substance: FENTANYL
     Indication: ARTHRITIS REACTIVE
     Route: 062
     Dates: start: 2012, end: 2012
  9. FENTANYL TRANSDERMAL SYSTEM [Suspect]
     Active Substance: FENTANYL
     Indication: ARTHRITIS REACTIVE
     Route: 062
     Dates: start: 200606, end: 200606
  10. DURAGESIC [Suspect]
     Active Substance: FENTANYL
     Indication: ARTHRITIS REACTIVE
     Route: 062
     Dates: start: 200602, end: 200604
  11. ZANTAC [Concomitant]
     Active Substance: RANITIDINE HYDROCHLORIDE
     Indication: UVEITIS
     Route: 048
  12. DURAGESIC [Suspect]
     Active Substance: FENTANYL
     Indication: ARTHRITIS REACTIVE
     Route: 062
     Dates: end: 200606
  13. DURAGESIC [Suspect]
     Active Substance: FENTANYL
     Indication: ARTHRITIS REACTIVE
     Route: 062
     Dates: start: 2002
  14. DURAGESIC [Suspect]
     Active Substance: FENTANYL
     Indication: PAIN
     Route: 062
     Dates: end: 200606
  15. FENTANYL TRANSDERMAL SYSTEM [Suspect]
     Active Substance: FENTANYL
     Indication: ARTHRITIS REACTIVE
     Route: 062
     Dates: start: 2017, end: 201709
  16. RANITIDINE. [Concomitant]
     Active Substance: RANITIDINE
     Indication: UVEITIS
     Route: 048
     Dates: start: 1996, end: 200608
  17. DURAGESIC [Suspect]
     Active Substance: FENTANYL
     Indication: ARTHRITIS REACTIVE
     Route: 062
     Dates: start: 200606
  18. DURAGESIC [Suspect]
     Active Substance: FENTANYL
     Indication: PAIN
     Route: 062
     Dates: start: 2002
  19. DURAGESIC [Suspect]
     Active Substance: FENTANYL
     Indication: PAIN
     Dosage: 50 MCG AND 100 MCG
     Route: 062
     Dates: start: 200604, end: 200608
  20. DURAGESIC [Suspect]
     Active Substance: FENTANYL
     Indication: PAIN
     Route: 062
     Dates: start: 2002, end: 200602
  21. LISINOPRIL. [Concomitant]
     Active Substance: LISINOPRIL
     Indication: HYPERTENSION
     Route: 048
  22. LORAZEPAM. [Concomitant]
     Active Substance: LORAZEPAM
     Route: 065
  23. PROVIGIL [Concomitant]
     Active Substance: MODAFINIL
     Route: 065
  24. DURAGESIC [Suspect]
     Active Substance: FENTANYL
     Indication: PAIN
     Route: 062
     Dates: start: 200606
  25. PREDNISOLONE. [Suspect]
     Active Substance: PREDNISOLONE
     Indication: ARTHRITIS REACTIVE
     Route: 048
     Dates: start: 2003
  26. OXYCODONE [Concomitant]
     Active Substance: OXYCODONE
     Indication: BREAKTHROUGH PAIN
     Route: 048
     Dates: start: 200107
  27. ZYRTEC [Concomitant]
     Active Substance: CETIRIZINE HYDROCHLORIDE
     Indication: SEASONAL ALLERGY
     Route: 048
     Dates: start: 1996
  28. ACTOS [Concomitant]
     Active Substance: PIOGLITAZONE HYDROCHLORIDE
     Indication: DIABETES MELLITUS
     Route: 048
  29. DURAGESIC [Suspect]
     Active Substance: FENTANYL
     Indication: PAIN
     Route: 062
     Dates: start: 200602, end: 200604
  30. FENTANYL TRANSDERMAL SYSTEM [Suspect]
     Active Substance: FENTANYL
     Indication: ARTHRITIS REACTIVE
     Route: 062
     Dates: start: 200608, end: 200608
  31. PREDNISOLONE. [Suspect]
     Active Substance: PREDNISOLONE
     Indication: ARTHRITIS REACTIVE
     Dosage: 2 IN MORNING, 1 IN EVENING
     Route: 048
  32. DURAGESIC [Suspect]
     Active Substance: FENTANYL
     Indication: ARTHRITIS REACTIVE
     Route: 062
     Dates: start: 2004
  33. DURAGESIC [Suspect]
     Active Substance: FENTANYL
     Indication: ARTHRITIS REACTIVE
     Route: 062
     Dates: start: 2002, end: 200602
  34. FENTANYL TRANSDERMAL SYSTEM [Suspect]
     Active Substance: FENTANYL
     Indication: ARTHRITIS REACTIVE
     Route: 062
     Dates: start: 2017, end: 2017
  35. DIOVAN [Concomitant]
     Active Substance: VALSARTAN
     Indication: BLOOD PRESSURE MEASUREMENT
     Route: 048

REACTIONS (25)
  - Narcolepsy [Not Recovered/Not Resolved]
  - Uveitis [Not Recovered/Not Resolved]
  - Application site reaction [Not Recovered/Not Resolved]
  - Drug ineffective [Recovered/Resolved]
  - Constipation [Not Recovered/Not Resolved]
  - Spinal compression fracture [Recovered/Resolved]
  - Drug ineffective [Recovered/Resolved]
  - Anxiety [Not Recovered/Not Resolved]
  - Diabetes mellitus [Not Recovered/Not Resolved]
  - Large intestine perforation [Recovered/Resolved]
  - Inappropriate schedule of drug administration [Unknown]
  - Subarachnoid haemorrhage [Recovered/Resolved]
  - Fall [Recovered/Resolved]
  - Fungal infection [Not Recovered/Not Resolved]
  - Withdrawal syndrome [Unknown]
  - Abdominal pain lower [Recovered/Resolved]
  - Post procedural infection [Not Recovered/Not Resolved]
  - Hypotension [Recovered/Resolved]
  - Wrong technique in product usage process [Not Recovered/Not Resolved]
  - Application site pustules [Not Recovered/Not Resolved]
  - Insomnia [Not Recovered/Not Resolved]
  - Spinal fracture [Recovered/Resolved]
  - Asthenia [Recovered/Resolved]
  - Application site urticaria [Not Recovered/Not Resolved]
  - Weight increased [Recovered/Resolved]

NARRATIVE: CASE EVENT DATE: 2002
